FAERS Safety Report 21975203 (Version 2)
Quarter: 2023Q1

REPORT INFORMATION
  Report Type: Report from Study
  Country: US (occurrence: US)
  Receive Date: 20230209
  Receipt Date: 20230223
  Transmission Date: 20230417
  Serious: No
  Sender: FDA-Public Use
  Company Number: US-SA-SAC20230208001396

PATIENT
  Age: 75 Year
  Sex: Female
  Weight: 55.3 kg

DRUGS (1)
  1. DUPIXENT [Suspect]
     Active Substance: DUPILUMAB
     Indication: Asthma
     Dosage: 300 MG, QOW
     Route: 058
     Dates: start: 202001

REACTIONS (6)
  - Spider vein [Recovering/Resolving]
  - Weight decreased [Not Recovered/Not Resolved]
  - Pulmonary vascular disorder [Not Recovered/Not Resolved]
  - Eye pain [Not Recovered/Not Resolved]
  - Yellow skin [Recovering/Resolving]
  - Hypoaesthesia [Recovering/Resolving]
